FAERS Safety Report 8057348-1 (Version None)
Quarter: 2012Q1

REPORT INFORMATION
  Report Type: 
  Country: None (occurrence: None)
  Receive Date: 20120119
  Receipt Date: 20120110
  Transmission Date: 20120608
  Serious: Yes (Hospitalization)
  Sender: FDA-Public Use
  Company Number: PH-ASTRAZENECA-2012SE01662

PATIENT
  Age: 59 Year
  Sex: Female

DRUGS (6)
  1. LOSARTAN POTASSIUM [Concomitant]
     Indication: HYPERTENSION
     Route: 048
  2. CARISOPRODOL [Suspect]
     Dosage: THREE TIMES A DAY
     Route: 048
     Dates: start: 20120103
  3. VIMOVO [Suspect]
     Indication: NECK PAIN
     Route: 048
     Dates: start: 20120103
  4. VIMOVO [Suspect]
     Indication: TORTICOLLIS
     Route: 048
     Dates: start: 20120103
  5. SIMVASTATIN [Concomitant]
     Route: 048
  6. METFORMIN [Concomitant]
     Indication: TYPE 2 DIABETES MELLITUS
     Route: 048

REACTIONS (5)
  - DYSPNOEA [None]
  - CHEST PAIN [None]
  - HYPERSENSITIVITY [None]
  - PRURITUS [None]
  - PERIORBITAL OEDEMA [None]
